FAERS Safety Report 21131384 (Version 1)
Quarter: 2022Q3

REPORT INFORMATION
  Report Type: Spontaneous
  Country: CN (occurrence: CN)
  Receive Date: 20220726
  Receipt Date: 20220726
  Transmission Date: 20221026
  Serious: Yes (Other)
  Sender: FDA-Public Use
  Company Number: CN-MLMSERVICE-20220714-3671728-1

PATIENT
  Age: 44 Year
  Sex: Male

DRUGS (12)
  1. GEMCITABINE [Suspect]
     Active Substance: GEMCITABINE
     Indication: Metastases to lung
     Dosage: 1 G/M^2, DAYS 1AND 8, EVERY 3 WEEKS??DOSE-2 G/M2
     Dates: start: 20201129
  2. CISPLATIN [Suspect]
     Active Substance: CISPLATIN
     Indication: Nasopharyngeal cancer
     Dosage: WEEKLY
  3. CETUXIMAB [Suspect]
     Active Substance: CETUXIMAB
     Indication: Metastases to bone
     Dosage: WEEKLY
     Dates: start: 20201129
  4. CETUXIMAB [Suspect]
     Active Substance: CETUXIMAB
     Indication: Metastases to lymph nodes
     Dosage: WEEKLY
     Dates: start: 20201129
  5. CISPLATIN [Suspect]
     Active Substance: CISPLATIN
     Indication: Metastases to lymph nodes
     Dosage: WEEKLY
  6. CISPLATIN [Suspect]
     Active Substance: CISPLATIN
     Indication: Metastases to bone
     Dosage: WEEKLY
  7. CISPLATIN [Suspect]
     Active Substance: CISPLATIN
     Indication: Metastases to bone marrow
     Dosage: WEEKLY
  8. CISPLATIN [Suspect]
     Active Substance: CISPLATIN
     Indication: Metastases to lung
     Dosage: WEEKLY
  9. GEMCITABINE [Suspect]
     Active Substance: GEMCITABINE
     Indication: Metastases to lymph nodes
     Dosage: DOSE-2 G/M2 ??1 G/M^2, DAYS 1AND 8, EVERY 3 WEEKS
     Dates: start: 20201129
  10. GEMCITABINE [Suspect]
     Active Substance: GEMCITABINE
     Indication: Metastases to bone marrow
     Dosage: DOSE-2 G/M2 ??1 G/M^2, DAYS 1AND 8, EVERY 3 WEEKS
     Dates: start: 20201129
  11. GEMCITABINE [Suspect]
     Active Substance: GEMCITABINE
     Indication: Metastases to bone
     Dosage: DOSE-2 G/M2 ??1 G/M^2, DAYS 1AND 8, EVERY 3 WEEKS
     Dates: start: 20201129
  12. GEMCITABINE [Suspect]
     Active Substance: GEMCITABINE
     Indication: Metastases to bone
     Dosage: DOSE-2 G/M2 ??1 G/M^2, DAYS 1AND 8, EVERY 3 WEEKS
     Dates: start: 20201129

REACTIONS (2)
  - Leukopenia [Recovered/Resolved]
  - Thrombocytopenia [Recovered/Resolved]
